FAERS Safety Report 9439907 (Version 1)
Quarter: 2013Q3

REPORT INFORMATION
  Report Type: Report from Study
  Country: FR (occurrence: FR)
  Receive Date: 20130805
  Receipt Date: 20130805
  Transmission Date: 20140515
  Serious: Yes (Other)
  Sender: FDA-Public Use
  Company Number: FR-MPIJNJ-2013-05768

PATIENT
  Sex: 0

DRUGS (5)
  1. VELCADE [Suspect]
     Indication: PLASMA CELL MYELOMA
  2. REVLIMID [Concomitant]
     Indication: PLASMA CELL MYELOMA
  3. DEXAMETHASONE [Concomitant]
     Indication: PLASMA CELL MYELOMA
  4. THALIDOMIDE [Concomitant]
     Indication: PLASMA CELL MYELOMA
  5. ENDOXAN                            /00021101/ [Concomitant]
     Indication: PLASMA CELL MYELOMA

REACTIONS (2)
  - Neurotoxicity [Unknown]
  - Disease progression [Unknown]
